FAERS Safety Report 7518902-6 (Version None)
Quarter: 2011Q2

REPORT INFORMATION
  Report Type: 
  Country: None (occurrence: None)
  Receive Date: 20110602
  Receipt Date: 20110531
  Transmission Date: 20111010
  Serious: Yes (Other)
  Sender: FDA-Public Use
  Company Number: US-PFIZER INC-2011118444

PATIENT
  Sex: Male
  Weight: 78 kg

DRUGS (6)
  1. METFORMIN [Concomitant]
     Dosage: UNK
  2. ETODOLAC [Concomitant]
     Dosage: UNK
  3. CHANTIX [Suspect]
     Indication: SMOKING CESSATION THERAPY
     Dosage: 0.5 MG, 1X/DAY
     Route: 048
     Dates: start: 20110501, end: 20110501
  4. SIMVASTATIN [Concomitant]
     Dosage: UNK
  5. CHANTIX [Suspect]
     Dosage: 1 MG, 2X/DAY
     Route: 048
     Dates: start: 20110507
  6. ONGLYZA [Concomitant]
     Dosage: UNK

REACTIONS (11)
  - ASTHENIA [None]
  - COUGH [None]
  - IRRITABILITY [None]
  - BLOOD GLUCOSE INCREASED [None]
  - DYSPNOEA [None]
  - CONSTIPATION [None]
  - THROAT TIGHTNESS [None]
  - WEIGHT DECREASED [None]
  - DECREASED APPETITE [None]
  - ABDOMINAL DISCOMFORT [None]
  - INSOMNIA [None]
